FAERS Safety Report 4448213-7 (Version None)
Quarter: 2004Q3

REPORT INFORMATION
  Report Type: 
  Country: None (occurrence: None)
  Receive Date: 20040913
  Receipt Date: 20040902
  Transmission Date: 20050211
  Serious: Yes (Disabling)
  Sender: FDA-Public Use
  Company Number: CH-GLAXOSMITHKLINE-B0344987A

PATIENT
  Age: 37 Year
  Sex: Male

DRUGS (1)
  1. ABACAVIR SULFATE + LAMIVUDINE + ZIDOVUDINE [Suspect]
     Indication: HIV INFECTION
     Route: 048

REACTIONS (4)
  - GOITRE [None]
  - PAIN [None]
  - PYREXIA [None]
  - THYROIDITIS SUBACUTE [None]
